FAERS Safety Report 6325984-6 (Version None)
Quarter: 2009Q3

REPORT INFORMATION
  Report Type: 
  Country: None (occurrence: None)
  Receive Date: 20090824
  Receipt Date: 20090817
  Transmission Date: 20100115
  Serious: Yes (Hospitalization)
  Sender: FDA-Public Use
  Company Number: IN-ELI_LILLY_AND_COMPANY-IN200908003589

PATIENT
  Age: 8 Year
  Sex: Male

DRUGS (1)
  1. XIGRIS [Suspect]
     Indication: ACINETOBACTER BACTERAEMIA
     Dosage: 8.4 ML, EVERY HOUR
     Route: 065
     Dates: start: 20090815

REACTIONS (2)
  - OFF LABEL USE [None]
  - PNEUMOTHORAX [None]
